FAERS Safety Report 9577183 (Version 1)
Quarter: 2013Q4

REPORT INFORMATION
  Report Type: Spontaneous
  Country: US (occurrence: US)
  Receive Date: 20131001
  Receipt Date: 20131001
  Transmission Date: 20140711
  Serious: No
  Sender: FDA-Public Use
  Company Number: US-AMGEN-USASP2013006928

PATIENT
  Age: 54 Year
  Sex: Female
  Weight: 113.38 kg

DRUGS (10)
  1. ENBREL [Suspect]
     Indication: RHEUMATOID ARTHRITIS
     Dosage: 50 MG, QWK
     Route: 058
  2. METHOTREXATE [Concomitant]
     Dosage: 2.5 MG, UNK
  3. LIPITOR [Concomitant]
     Dosage: 20 MG, UNK
  4. ACYCLOVIR                          /00587301/ [Concomitant]
     Dosage: 400 MG, UNK
  5. LEVOTHYROXIN [Concomitant]
     Dosage: 25 MUG, UNK
  6. MULTIVITAMINS, PLAIN [Concomitant]
     Dosage: UNK
  7. VITAMIN D                          /00107901/ [Concomitant]
     Dosage: 2000 UNIT, UNK
  8. VITAMIN C                          /00008001/ [Concomitant]
     Dosage: 500 MG, UNK
  9. GLUCOSAMINE/CHONDROITIN            /01625901/ [Concomitant]
     Dosage: 500-400 UNK
  10. FOLIC ACID [Concomitant]
     Dosage: 20 MG, UNK

REACTIONS (2)
  - Influenza like illness [Unknown]
  - Drug effect incomplete [Unknown]
